FAERS Safety Report 15640610 (Version 1)
Quarter: 2018Q4

REPORT INFORMATION
  Report Type: Spontaneous
  Country: US (occurrence: US)
  Receive Date: 20181120
  Receipt Date: 20181120
  Transmission Date: 20190205
  Serious: Yes (Hospitalization, Other)
  Sender: FDA-Public Use
  Company Number: US-SA-2018SA313194

PATIENT
  Age: 69 Year
  Sex: Female

DRUGS (2)
  1. LANTUS [Suspect]
     Active Substance: INSULIN GLARGINE
     Indication: TYPE 2 DIABETES MELLITUS
     Dosage: 22-32 UNITS ONCE A DAY
  2. METFORMIN HYDROCHLORIDE. [Suspect]
     Active Substance: METFORMIN HYDROCHLORIDE
     Indication: DIABETES MELLITUS
     Dosage: TWO TABLETS IN THE MORNING AND TWO AT NIGHT

REACTIONS (8)
  - Feeling abnormal [Unknown]
  - Knee arthroplasty [Unknown]
  - Device issue [Unknown]
  - Chest pain [Unknown]
  - Blood glucose increased [Unknown]
  - Coronary artery stenosis [Unknown]
  - Incorrect dose administered by device [Unknown]
  - Back injury [Unknown]
